FAERS Safety Report 8816379 (Version 1)
Quarter: 2012Q4

REPORT INFORMATION
  Report Type: Spontaneous
  Country: US (occurrence: None)
  Receive Date: 20120928
  Receipt Date: 20120928
  Transmission Date: 20130627
  Serious: Yes (Hospitalization)
  Sender: FDA-Public Use
  Company Number: None

PATIENT
  Age: 65 Year
  Sex: Male
  Weight: 61.1 kg

DRUGS (14)
  1. PLAVIX [Suspect]
     Indication: CORONARY ARTERY DISEASE
     Dosage: chronic
     Route: 048
  2. PLAVIX [Suspect]
     Indication: CORONARY STENT PLACEMENT
     Dosage: chronic
     Route: 048
  3. ASA [Suspect]
     Indication: CORONARY ARTERY DISEASE
     Dosage: chronic
     Route: 048
  4. ASA [Suspect]
     Indication: CORONARY STENT PLACEMENT
     Dosage: chronic
     Route: 048
  5. ZOLOFT [Concomitant]
  6. ATENOLOL [Concomitant]
  7. COGENTIN [Concomitant]
  8. HALDOL [Concomitant]
  9. MVI [Concomitant]
  10. ZANTAC [Concomitant]
  11. MOM [Concomitant]
  12. TYLENOL [Concomitant]
  13. OMEPRAZOLE [Concomitant]
  14. PERCOCET [Concomitant]

REACTIONS (7)
  - Upper gastrointestinal haemorrhage [None]
  - Gastritis erosive [None]
  - Gastric ulcer [None]
  - Haemoglobin abnormal [None]
  - Nausea [None]
  - Haematemesis [None]
  - Faeces discoloured [None]
